FAERS Safety Report 21656544 (Version 2)
Quarter: 2022Q4

REPORT INFORMATION
  Report Type: Report from Study
  Country: US (occurrence: US)
  Receive Date: 20221129
  Receipt Date: 20221208
  Transmission Date: 20230113
  Serious: Yes (Death, Hospitalization)
  Sender: FDA-Public Use
  Company Number: US-MYLANLABS-2022M1132629

PATIENT
  Age: 82 Year
  Sex: Male
  Weight: 220 kg

DRUGS (4)
  1. NOREPINEPHRINE [Suspect]
     Active Substance: NOREPINEPHRINE
     Indication: Septic shock
     Dosage: 5MCG/MIN
     Route: 042
     Dates: start: 20201224, end: 20201224
  2. VANCOMYCIN [Suspect]
     Active Substance: VANCOMYCIN
     Indication: Septic shock
     Dosage: 15 MILLIGRAM/KILOGRAM
     Route: 042
     Dates: start: 20201223, end: 20201224
  3. DOBUTAMINE [Suspect]
     Active Substance: DOBUTAMINE HYDROCHLORIDE
     Indication: Septic shock
     Dosage: 2.5MCG/KG /MIN
     Route: 042
     Dates: start: 20201224, end: 20201231
  4. VASOPRESSIN [Suspect]
     Active Substance: VASOPRESSIN
     Indication: Septic shock
     Dosage: UNK, 0.03 UNITS/MIN
     Route: 042
     Dates: start: 20201223, end: 20201231

REACTIONS (1)
  - Drug ineffective [Fatal]
